FAERS Safety Report 11835234 (Version 1)
Quarter: 2015Q4

REPORT INFORMATION
  Report Type: Spontaneous
  Country: SI (occurrence: SI)
  Receive Date: 20151215
  Receipt Date: 20151215
  Transmission Date: 20160305
  Serious: Yes (Hospitalization, Other)
  Sender: FDA-Public Use
  Company Number: SI-AMGEN-SVNSP2015132911

PATIENT
  Age: 58 Year
  Sex: Male
  Weight: 75 kg

DRUGS (2)
  1. AGLURAB [Concomitant]
     Indication: TYPE 2 DIABETES MELLITUS
     Dosage: 500 MG 2X1 TBL./DAY
     Route: 048
  2. ENBREL [Suspect]
     Active Substance: ETANERCEPT
     Indication: PSORIATIC ARTHROPATHY
     Dosage: 50 MG, WEEKLY
     Route: 058
     Dates: start: 20090424, end: 20150329

REACTIONS (2)
  - Dysphagia [Recovering/Resolving]
  - Retroperitoneal fibrosis [Recovering/Resolving]

NARRATIVE: CASE EVENT DATE: 201501
